FAERS Safety Report 15406029 (Version 1)
Quarter: 2018Q3

REPORT INFORMATION
  Report Type: Spontaneous
  Country: US (occurrence: US)
  Receive Date: 20180920
  Receipt Date: 20180920
  Transmission Date: 20181010
  Serious: No
  Sender: FDA-Public Use
  Company Number: US-PFIZER INC-2018379057

PATIENT
  Age: 25 Year
  Sex: Male

DRUGS (1)
  1. SUTENT [Suspect]
     Active Substance: SUNITINIB MALATE
     Dosage: 37.5 MG, UNK
     Dates: start: 20180912

REACTIONS (5)
  - Neck pain [Unknown]
  - Headache [Unknown]
  - Vomiting [Unknown]
  - Musculoskeletal pain [Unknown]
  - Hepatic pain [Unknown]

NARRATIVE: CASE EVENT DATE: 201809
